FAERS Safety Report 18724247 (Version 1)
Quarter: 2021Q1

REPORT INFORMATION
  Report Type: Spontaneous
  Country: US (occurrence: US)
  Receive Date: 20210110
  Receipt Date: 20210110
  Transmission Date: 20210419
  Serious: Yes (Other)
  Sender: FDA-Public Use
  Company Number: None

PATIENT
  Age: 44 Year
  Sex: Female
  Weight: 82.35 kg

DRUGS (5)
  1. PRAVASTATIN. [Concomitant]
     Active Substance: PRAVASTATIN
  2. MISOPROSTOL. [Suspect]
     Active Substance: MISOPROSTOL
     Indication: BIOPSY ENDOMETRIUM
     Dosage: ?          QUANTITY:1 TABLET(S);?
     Route: 067
     Dates: start: 20210107, end: 20210107
  3. FERROUS GLUCONATE [Concomitant]
     Active Substance: FERROUS GLUCONATE
  4. VITAMIN D [Concomitant]
     Active Substance: VITAMIN D NOS
  5. IRON [Concomitant]
     Active Substance: IRON

REACTIONS (9)
  - Nausea [None]
  - Impaired work ability [None]
  - Pyrexia [None]
  - Muscle spasms [None]
  - Thrombosis [None]
  - Fatigue [None]
  - Eye haemorrhage [None]
  - Vomiting [None]
  - Pain [None]

NARRATIVE: CASE EVENT DATE: 20210107
